FAERS Safety Report 9512234 (Version 2)
Quarter: 2014Q2

REPORT INFORMATION
  Report Type: Spontaneous
  Country: MX (occurrence: MX)
  Receive Date: 20130910
  Receipt Date: 20140630
  Transmission Date: 20141212
  Serious: Yes (Other)
  Sender: FDA-Public Use
  Company Number: PHHY2013MX099184

PATIENT
  Age: 55 Year
  Sex: Male

DRUGS (7)
  1. EXFORGE [Suspect]
     Indication: HYPERTENSION
     Dosage: 0.5 DF (160/5MG), DAILY
     Route: 048
     Dates: start: 201302, end: 201305
  2. EXFORGE [Suspect]
     Dosage: 0.5 DF (160/10MG), DAILY
     Route: 048
     Dates: end: 201401
  3. ASPIRIN PROTECT [Concomitant]
     Dosage: 1 UKN, DAILY
  4. DIMEFOR [Concomitant]
     Indication: BLOOD TRIGLYCERIDES ABNORMAL
     Dosage: 1 UKN, DAILY
     Dates: start: 201308
  5. DIMEFOR [Concomitant]
     Indication: BLOOD CHOLESTEROL ABNORMAL
  6. LIPITOR [Concomitant]
     Dosage: 0.5 UKN, DAILY
  7. CLOPIDOGREL [Concomitant]
     Indication: OXYGEN SUPPLEMENTATION
     Dosage: 1 UKN, DAILY
     Dates: start: 201308

REACTIONS (7)
  - Cerebrovascular accident [Recovered/Resolved]
  - Neuralgia [Recovered/Resolved]
  - Somnolence [Recovered/Resolved]
  - Blood pressure fluctuation [Recovered/Resolved]
  - Asthenia [Recovered/Resolved]
  - Drug dispensing error [Unknown]
  - Wrong technique in drug usage process [Recovered/Resolved]
